FAERS Safety Report 5015824-X (Version None)
Quarter: 2006Q2

REPORT INFORMATION
  Report Type: 
  Country: None (occurrence: None)
  Receive Date: 20060525
  Receipt Date: 20060427
  Transmission Date: 20061013
  Serious: Yes (Death, Other)
  Sender: FDA-Public Use
  Company Number: US200605001751

PATIENT
  Age: 3 Year
  Sex: Male

DRUGS (2)
  1. SOMATROPIN (SOMATROPIN ) [Suspect]
     Indication: PRADER-WILLI SYNDROME
     Dosage: 0.12 MG/KG, WEEKLY (1/W)
  2. SALBUTEROL (SALBUTEROL) [Concomitant]

REACTIONS (1)
  - PNEUMONITIS [None]
